FAERS Safety Report 10483880 (Version 2)
Quarter: 2014Q4

REPORT INFORMATION
  Report Type: Spontaneous
  Country: NL (occurrence: NL)
  Receive Date: 20140930
  Receipt Date: 20141007
  Transmission Date: 20150528
  Serious: Yes (Life-Threatening)
  Sender: FDA-Public Use
  Company Number: NL-ELI_LILLY_AND_COMPANY-NL201409009508

PATIENT
  Age: 20 Year
  Sex: Female

DRUGS (8)
  1. NITROFURANTOIN. [Interacting]
     Active Substance: NITROFURANTOIN
     Dosage: 50 MG, OTHER
     Dates: start: 20131025
  2. ITRACONAZOL [Concomitant]
     Active Substance: ITRACONAZOLE
     Dosage: 100 MG, QD
     Dates: start: 20140407
  3. FLUCONAZOL [Concomitant]
     Active Substance: FLUCONAZOLE
     Dosage: 150 MG, QD
     Route: 065
  4. CIPROFLOXACIN. [Interacting]
     Active Substance: CIPROFLOXACIN
     Indication: CYSTITIS
     Dosage: 500 MG, BID
     Dates: start: 20140430, end: 20140912
  5. AMOXICILLINE [Interacting]
     Active Substance: AMOXICILLIN
     Indication: CYSTITIS
     Dosage: 500 MG, TID
     Route: 065
     Dates: start: 20140422, end: 20140912
  6. LYRICA [Concomitant]
     Active Substance: PREGABALIN
     Indication: PRODUCT USED FOR UNKNOWN INDICATION
     Dosage: 75 MG, QD
     Route: 065
     Dates: start: 20140307
  7. STRATTERA [Suspect]
     Active Substance: ATOMOXETINE HYDROCHLORIDE
     Indication: ATTENTION DEFICIT/HYPERACTIVITY DISORDER
     Dosage: 25 MG, QD
     Route: 065
     Dates: start: 20140407, end: 20140912
  8. NITROFURANTOIN. [Interacting]
     Active Substance: NITROFURANTOIN
     Indication: CYSTITIS
     Dosage: 100 MG, BID
     Route: 065
     Dates: start: 20131014, end: 20140912

REACTIONS (4)
  - Aggression [Recovered/Resolved]
  - Drug interaction [Recovered/Resolved]
  - Suicidal ideation [Recovered/Resolved]
  - Agitation [Recovered/Resolved]

NARRATIVE: CASE EVENT DATE: 20140430
